FAERS Safety Report 7209613-5 (Version None)
Quarter: 2011Q1

REPORT INFORMATION
  Report Type: 
  Country: None (occurrence: None)
  Receive Date: 20110104
  Receipt Date: 20101223
  Transmission Date: 20110831
  Serious: Yes (Other)
  Sender: FDA-Public Use
  Company Number: US-CELGENEUS-163-21880-10110079

PATIENT
  Sex: Female

DRUGS (5)
  1. DEXAMETHASONE [Concomitant]
     Route: 065
  2. ASPIRIN [Concomitant]
     Route: 065
  3. VICODIN [Concomitant]
     Indication: PAIN
     Route: 065
  4. PREDNISONE [Concomitant]
     Route: 065
  5. REVLIMID [Suspect]
     Indication: MULTIPLE MYELOMA
     Route: 048
     Dates: start: 20100604, end: 20100101

REACTIONS (9)
  - COUGH [None]
  - PULMONARY CONGESTION [None]
  - CARDIOMEGALY [None]
  - CONSTIPATION [None]
  - DIZZINESS [None]
  - PERICARDIAL EFFUSION [None]
  - FATIGUE [None]
  - ABDOMINAL DISCOMFORT [None]
  - CHEST DISCOMFORT [None]
